FAERS Safety Report 24629810 (Version 4)
Quarter: 2025Q1

REPORT INFORMATION
  Report Type: Report from Study
  Country: JP (occurrence: JP)
  Receive Date: 20241118
  Receipt Date: 20250206
  Transmission Date: 20250409
  Serious: Yes (Hospitalization)
  Sender: MERZ
  Company Number: JP-teijin-202404360_XEO_P_1

PATIENT

DRUGS (2)
  1. XEOMIN [Suspect]
     Active Substance: INCOBOTULINUMTOXINA
     Indication: Muscle spasticity
     Dosage: 800 INTERNATIONAL UNIT
     Route: 030
     Dates: start: 20240917, end: 20240917
  2. XEOMIN [Suspect]
     Active Substance: INCOBOTULINUMTOXINA
     Indication: Muscle spasticity
     Dosage: 800 INTERNATIONAL UNIT
     Route: 030
     Dates: start: 20240704, end: 20240704

REACTIONS (6)
  - Hypoaesthesia oral [Recovering/Resolving]
  - Gait disturbance [Unknown]
  - Dysphonia [Unknown]
  - Eyelid ptosis [Unknown]
  - Dysphagia [Unknown]
  - Overdose [Unknown]

NARRATIVE: CASE EVENT DATE: 20240901
